FAERS Safety Report 14431713 (Version 1)
Quarter: 2018Q1

REPORT INFORMATION
  Report Type: Spontaneous
  Country: HR (occurrence: HR)
  Receive Date: 20180124
  Receipt Date: 20180124
  Transmission Date: 20180509
  Serious: Yes (Hospitalization)
  Sender: FDA-Public Use
  Company Number: HR-LPDUSPRD-20180052

PATIENT
  Age: 33 Year
  Sex: Female
  Weight: 80 kg

DRUGS (1)
  1. FERINJECT [Suspect]
     Active Substance: FERRIC CARBOXYMALTOSE
     Dosage: UNKNOWN
     Route: 042
     Dates: start: 20170914

REACTIONS (6)
  - Vertigo [Unknown]
  - Tongue oedema [Unknown]
  - Paraesthesia [Unknown]
  - Dizziness [Unknown]
  - Speech disorder [Unknown]
  - Nausea [Unknown]

NARRATIVE: CASE EVENT DATE: 20171009
